FAERS Safety Report 5676060-7 (Version None)
Quarter: 2008Q1

REPORT INFORMATION
  Report Type: 
  Country: None (occurrence: None)
  Receive Date: 20080321
  Receipt Date: 20080311
  Transmission Date: 20080703
  Serious: Yes (Hospitalization)
  Sender: FDA-Public Use
  Company Number: GB-ROCHE-538877

PATIENT
  Age: 68 Year
  Sex: Male
  Weight: 80.5 kg

DRUGS (4)
  1. CAPECITABINE [Suspect]
     Indication: COLON CANCER
     Dosage: MOST RECENT DOSE RECEIVED AT 24 DEC 2007
     Route: 048
     Dates: start: 20071211
  2. CAPECITABINE [Suspect]
     Dosage: 25% DOSE REDUCTION.
     Route: 048
  3. BEVACIZUMAB [Suspect]
     Indication: COLON CANCER
     Route: 042
     Dates: start: 20071211
  4. BENDROFLUAZIDE [Concomitant]
     Indication: HYPERTENSION
     Dosage: ROUTE REPORTED AS O

REACTIONS (2)
  - DIARRHOEA [None]
  - MUCOSAL INFLAMMATION [None]
